FAERS Safety Report 23663085 (Version 2)
Quarter: 2024Q2

REPORT INFORMATION
  Report Type: Spontaneous
  Country: US (occurrence: US)
  Receive Date: 20240322
  Receipt Date: 20240509
  Transmission Date: 20240715
  Serious: Yes (Other)
  Sender: FDA-Public Use
  Company Number: US-BRISTOL-MYERS SQUIBB COMPANY-2024-042980

PATIENT
  Age: 79 Year
  Sex: Female

DRUGS (3)
  1. LENALIDOMIDE [Suspect]
     Active Substance: LENALIDOMIDE
     Indication: Plasma cell myeloma
     Dosage: TAKE 1 CAPSULE BY MOUTH EVERY DAY FOR 21 DAYS ON THEN 7 DAYS OFF FOR A 28 DAY
     Route: 048
     Dates: end: 20240214
  2. LENALIDOMIDE [Suspect]
     Active Substance: LENALIDOMIDE
     Dosage: TAKE 1 CAPSULE BY MOUTH EVERY DAY FOR 21 DAYS ON THEN 7 DAYS OFF FOR A 28 DAY
     Route: 048
  3. LENALIDOMIDE [Suspect]
     Active Substance: LENALIDOMIDE
     Dosage: TAKE 1 CAPSULE (15MG) BY MOUTH EVERY DAY FOR 21 DAYS ON THEN 7 DAYS OFF FOR A 28 DAY CYCLE
     Route: 048

REACTIONS (3)
  - Blood test abnormal [Recovering/Resolving]
  - Pain in extremity [Recovered/Resolved]
  - Diarrhoea [Not Recovered/Not Resolved]
